FAERS Safety Report 19052220 (Version 3)
Quarter: 2021Q2

REPORT INFORMATION
  Report Type: Other
  Country: US (occurrence: US)
  Receive Date: 20210324
  Receipt Date: 20210417
  Transmission Date: 20210717
  Serious: Yes (Other)
  Sender: FDA-Public Use
  Company Number: US-ROCHE-2793618

PATIENT
  Sex: Male

DRUGS (14)
  1. VENTOLIN HFA [Concomitant]
     Active Substance: ALBUTEROL SULFATE
     Dosage: 90 MCG, ACTUATION AEROSOL INHALER
  2. ZYRTEC (UNITED STATES) [Concomitant]
  3. GABAPENTIN. [Concomitant]
     Active Substance: GABAPENTIN
  4. XOLAIR [Suspect]
     Active Substance: OMALIZUMAB
     Indication: IDIOPATHIC URTICARIA
     Dosage: LAST INJECTION DATE: 12/MAR/2021.?ANTICIPATED TREATMENT DATE: 13/APR/2021.
     Route: 058
  5. VITAMIN B12 [Concomitant]
     Active Substance: CYANOCOBALAMIN
     Dosage: 100MCG
  6. VITAMIN D2 [Concomitant]
     Active Substance: ERGOCALCIFEROL
     Dosage: 50,000 UNIT
  7. MELATONIN [Concomitant]
     Active Substance: MELATONIN
  8. EPIPEN [Concomitant]
     Active Substance: EPINEPHRINE
     Dosage: 0.3 MG/0.3 ML
  9. XOLAIR [Suspect]
     Active Substance: OMALIZUMAB
  10. XOLAIR [Suspect]
     Active Substance: OMALIZUMAB
  11. BENADRYL [Concomitant]
     Active Substance: DIPHENHYDRAMINE HYDROCHLORIDE
  12. XOLAIR [Suspect]
     Active Substance: OMALIZUMAB
  13. XOLAIR [Suspect]
     Active Substance: OMALIZUMAB
     Indication: ALLERGY TO ARTHROPOD STING
  14. XOLAIR [Suspect]
     Active Substance: OMALIZUMAB

REACTIONS (6)
  - Dyspnoea [Unknown]
  - Arthropod sting [Unknown]
  - Pharyngeal swelling [Unknown]
  - Arthritis [Unknown]
  - Headache [Unknown]
  - Anaphylactic reaction [Unknown]
